FAERS Safety Report 8398900-3 (Version None)
Quarter: 2012Q2

REPORT INFORMATION
  Report Type: 
  Country: None (occurrence: None)
  Receive Date: 20120531
  Receipt Date: 20120529
  Transmission Date: 20120825
  Serious: Yes (Hospitalization, Disabling)
  Sender: FDA-Public Use
  Company Number: BR-BAYER-2012-053032

PATIENT
  Age: 37 Year
  Sex: Female

DRUGS (1)
  1. BETASERON [Suspect]
     Indication: MULTIPLE SCLEROSIS
     Dosage: 1 ML, QOD
     Route: 058
     Dates: start: 20120110

REACTIONS (8)
  - MULTIPLE SCLEROSIS RELAPSE [None]
  - RETCHING [None]
  - NECK PAIN [None]
  - PARAESTHESIA [None]
  - TREMOR [None]
  - TINNITUS [None]
  - MUSCULAR WEAKNESS [None]
  - DIPLEGIA [None]
